FAERS Safety Report 6415873-0 (Version None)
Quarter: 2009Q4

REPORT INFORMATION
  Report Type: 
  Country: None (occurrence: None)
  Receive Date: 20091022
  Receipt Date: 20091009
  Transmission Date: 20100525
  Serious: Yes (Hospitalization)
  Sender: FDA-Public Use
  Company Number: 8052381

PATIENT
  Age: 82 Year
  Sex: Male
  Weight: 95 kg

DRUGS (5)
  1. KEPPRA [Suspect]
     Indication: POST-TRAUMATIC EPILEPSY
     Dosage: 500 MG 2/D
     Dates: start: 20090730, end: 20090910
  2. ANTIHYPERTENSIVE DRUGS [Concomitant]
  3. ASPEGIC 1000 [Concomitant]
  4. COVERSYL [Concomitant]
  5. LOVENOX [Concomitant]

REACTIONS (4)
  - DISORIENTATION [None]
  - ENCEPHALOPATHY [None]
  - HALLUCINATION, VISUAL [None]
  - PSYCHOMOTOR RETARDATION [None]
